FAERS Safety Report 9721904 (Version 1)
Quarter: 2013Q4

REPORT INFORMATION
  Report Type: Spontaneous
  Country: AU (occurrence: AU)
  Receive Date: 20131202
  Receipt Date: 20131202
  Transmission Date: 20140711
  Serious: Yes (Other)
  Sender: FDA-Public Use
  Company Number: PHHY2013AU136903

PATIENT
  Sex: Female

DRUGS (1)
  1. CANDESARTAN SANDOZ [Suspect]
     Dosage: 32 MG, UNK
     Route: 048
     Dates: start: 20131116, end: 20131125

REACTIONS (2)
  - Blood pressure increased [Unknown]
  - Headache [Unknown]
